FAERS Safety Report 6565621-9 (Version None)
Quarter: 2010Q1

REPORT INFORMATION
  Report Type: 
  Country: None (occurrence: None)
  Receive Date: 20100201
  Receipt Date: 20091218
  Transmission Date: 20100710
  Serious: Yes (Hospitalization, Other)
  Sender: FDA-Public Use
  Company Number: US-BAXTER-2009BH013292

PATIENT
  Age: 46 Year
  Sex: Male
  Weight: 127 kg

DRUGS (7)
  1. HEPARIN SODIUM INJECTION [Suspect]
     Indication: CEREBROVASCULAR ACCIDENT
     Route: 058
     Dates: start: 20070701, end: 20071001
  2. ATORVASTATIN [Suspect]
     Indication: BLOOD CHOLESTEROL
     Route: 065
     Dates: start: 20070724, end: 20070801
  3. EZETIMIBE [Suspect]
     Indication: BLOOD CHOLESTEROL
     Route: 065
     Dates: start: 20070724, end: 20070801
  4. PLAVIX [Suspect]
     Indication: CEREBROVASCULAR ACCIDENT
     Route: 065
     Dates: start: 20070723, end: 20070906
  5. LISINOPRIL [Concomitant]
     Indication: DRUG USE FOR UNKNOWN INDICATION
     Route: 065
     Dates: end: 20070720
  6. CENTRUM [Concomitant]
     Indication: DRUG USE FOR UNKNOWN INDICATION
     Route: 065
  7. KEFLEX [Concomitant]
     Indication: DRUG USE FOR UNKNOWN INDICATION
     Route: 065
     Dates: start: 20070721

REACTIONS (23)
  - ABASIA [None]
  - ABDOMINAL ABSCESS [None]
  - ABDOMINAL DISCOMFORT [None]
  - ABDOMINAL PAIN [None]
  - ANAEMIA [None]
  - CHOLECYSTITIS [None]
  - CHOLECYSTITIS INFECTIVE [None]
  - CHOLELITHIASIS [None]
  - DECREASED APPETITE [None]
  - DYSPNOEA [None]
  - HEPATIC CYST [None]
  - HEPATIC ENZYME INCREASED [None]
  - HEPATIC STEATOSIS [None]
  - HYPERSENSITIVITY [None]
  - IMPAIRED HEALING [None]
  - INJECTION SITE PAIN [None]
  - LIVER DISORDER [None]
  - NAUSEA [None]
  - PAIN [None]
  - PANCYTOPENIA [None]
  - PYREXIA [None]
  - RESPIRATORY DISORDER [None]
  - SKIN DISCOLOURATION [None]
